FAERS Safety Report 12189893 (Version 1)
Quarter: 2016Q1

REPORT INFORMATION
  Report Type: Spontaneous
  Country: US (occurrence: US)
  Receive Date: 20160318
  Receipt Date: 20160318
  Transmission Date: 20160526
  Serious: Yes (Other)
  Sender: FDA-Public Use
  Company Number: US-BRISTOL-MYERS SQUIBB COMPANY-BMS-2016-018333

PATIENT
  Sex: Male
  Weight: 99.77 kg

DRUGS (1)
  1. ELIQUIS [Suspect]
     Active Substance: APIXABAN
     Indication: THROMBOSIS PROPHYLAXIS
     Dosage: 5 MG, BID
     Route: 048
     Dates: start: 20160205

REACTIONS (6)
  - Dizziness [Unknown]
  - Dialysis [Unknown]
  - Chest discomfort [Unknown]
  - Renal pain [Unknown]
  - Renal impairment [Unknown]
  - Dyspnoea [Unknown]
